FAERS Safety Report 19552120 (Version 1)
Quarter: 2021Q3

REPORT INFORMATION
  Report Type: Spontaneous
  Country: BR (occurrence: BR)
  Receive Date: 20210715
  Receipt Date: 20210715
  Transmission Date: 20211014
  Serious: Yes (Other)
  Sender: FDA-Public Use
  Company Number: BR-SAMIL-GLO2021BR005563

PATIENT

DRUGS (2)
  1. RITUXIMAB. [Suspect]
     Active Substance: RITUXIMAB
     Indication: FOLLICULAR LYMPHOMA
     Dosage: UNK, 6 CYCLES
     Route: 065
     Dates: start: 201601
  2. CHLORAMBUCIL [Suspect]
     Active Substance: CHLORAMBUCIL
     Indication: FOLLICULAR LYMPHOMA
     Dosage: UNK, 6 CYCLES
     Route: 065
     Dates: start: 201601

REACTIONS (1)
  - Bronchopulmonary aspergillosis [Unknown]
